FAERS Safety Report 4332143-5 (Version None)
Quarter: 2004Q2

REPORT INFORMATION
  Report Type: 
  Country: None (occurrence: None)
  Receive Date: 20040401
  Receipt Date: 20040401
  Transmission Date: 20050107
  Serious: Yes (Other)
  Sender: FDA-Public Use
  Company Number: None

PATIENT
  Sex: Male

DRUGS (2)
  1. SEROQUEL [Suspect]
     Dosage: 75 MG HS ORAL
     Route: 048
  2. MACROBID [Suspect]
     Indication: URINARY TRACT INFECTION
     Dosage: 100 MG BID ORAL
     Route: 048
     Dates: start: 20040213, end: 20040218

REACTIONS (1)
  - LIVER FUNCTION TEST ABNORMAL [None]
